FAERS Safety Report 10167916 (Version 1)
Quarter: 2014Q2

REPORT INFORMATION
  Report Type: Spontaneous
  Country: US (occurrence: US)
  Receive Date: 20140512
  Receipt Date: 20140512
  Transmission Date: 20141212
  Serious: No
  Sender: FDA-Public Use
  Company Number: US-ASTRAZENECA-2013SE52063

PATIENT
  Age: 73 Year
  Sex: Female
  Weight: 53.1 kg

DRUGS (2)
  1. FASLODEX [Suspect]
     Route: 058
  2. EXEDRIN [Concomitant]

REACTIONS (7)
  - Dizziness [Unknown]
  - Dyspnoea [Unknown]
  - Hypoaesthesia [Unknown]
  - Yellow skin [Unknown]
  - Sensation of foreign body [Unknown]
  - Headache [Unknown]
  - Fatigue [Unknown]
